FAERS Safety Report 8586386-5 (Version None)
Quarter: 2012Q3

REPORT INFORMATION
  Report Type: 
  Country: None (occurrence: None)
  Receive Date: 20120810
  Receipt Date: 20120808
  Transmission Date: 20120928
  Serious: No
  Sender: FDA-Public Use
  Company Number: US-PFIZER INC-2012194236

PATIENT
  Age: 54 Year
  Sex: Female
  Weight: 68.027 kg

DRUGS (1)
  1. NEURONTIN [Suspect]
     Indication: NERVOUS SYSTEM DISORDER
     Dosage: 300 MG, 3X/DAY
     Route: 048
     Dates: start: 20020101

REACTIONS (1)
  - WEIGHT DECREASED [None]
